FAERS Safety Report 16909516 (Version 2)
Quarter: 2020Q2

REPORT INFORMATION
  Report Type: Spontaneous
  Country: JP (occurrence: JP)
  Receive Date: 20191011
  Receipt Date: 20200422
  Transmission Date: 20200713
  Serious: Yes (Other)
  Sender: FDA-Public Use
  Company Number: JP-SEATTLE GENETICS-2019SGN03470

PATIENT
  Age: 78 Year

DRUGS (1)
  1. ADCETRIS [Suspect]
     Active Substance: BRENTUXIMAB VEDOTIN
     Indication: HODGKIN^S DISEASE RECURRENT
     Dosage: 1.2 MILLIGRAM/KILOGRAM
     Route: 042
     Dates: start: 201908

REACTIONS (2)
  - Condition aggravated [Unknown]
  - Hodgkin^s disease recurrent [Unknown]

NARRATIVE: CASE EVENT DATE: 201910
